FAERS Safety Report 7482849-4 (Version None)
Quarter: 2011Q2

REPORT INFORMATION
  Report Type: 
  Country: None (occurrence: None)
  Receive Date: 20110516
  Receipt Date: 20110510
  Transmission Date: 20111010
  Serious: Yes (Other)
  Sender: FDA-Public Use
  Company Number: US-PFIZER INC-2011074565

PATIENT
  Sex: Male
  Weight: 62.1 kg

DRUGS (2)
  1. PLAVIX [Concomitant]
     Dosage: UNK
  2. LIPITOR [Suspect]
     Indication: BLOOD CHOLESTEROL INCREASED
     Dosage: 80 MG, 1X/DAY
     Route: 048
     Dates: start: 20090101

REACTIONS (4)
  - WEIGHT DECREASED [None]
  - HYPERTENSION [None]
  - MUSCLE ATROPHY [None]
  - MUSCULAR WEAKNESS [None]
